FAERS Safety Report 8116326-4 (Version None)
Quarter: 2012Q1

REPORT INFORMATION
  Report Type: 
  Country: None (occurrence: None)
  Receive Date: 20120206
  Receipt Date: 20120201
  Transmission Date: 20120608
  Serious: Yes (Hospitalization)
  Sender: FDA-Public Use
  Company Number: US-GLAXOSMITHKLINE-A0960427A

PATIENT
  Age: 84 Year
  Sex: Female
  Weight: 59.2 kg

DRUGS (3)
  1. ALKERAN [Suspect]
     Indication: MULTIPLE MYELOMA
     Route: 065
     Dates: start: 20110701, end: 20110910
  2. LYRICA [Concomitant]
     Route: 048
     Dates: start: 20111210
  3. VALTREX [Concomitant]
     Route: 048
     Dates: start: 20111210

REACTIONS (2)
  - HEADACHE [None]
  - CEREBROVASCULAR SPASM [None]
